FAERS Safety Report 19991406 (Version 4)
Quarter: 2022Q3

REPORT INFORMATION
  Report Type: Spontaneous
  Country: JP (occurrence: JP)
  Receive Date: 20211025
  Receipt Date: 20220914
  Transmission Date: 20221027
  Serious: Yes (Hospitalization, Disabling)
  Sender: FDA-Public Use
  Company Number: JP-ATNAHS LIMITED-ATNAHS20211007775

PATIENT
  Age: 76 Year
  Sex: Female
  Weight: 41.5 kg

DRUGS (6)
  1. BONVIVA [Suspect]
     Active Substance: IBANDRONATE SODIUM
     Indication: Osteoporosis
     Route: 042
     Dates: start: 20150410, end: 20210413
  2. ALPROSTADIL [Concomitant]
     Active Substance: ALPROSTADIL
     Indication: Product used for unknown indication
     Dates: start: 20150410, end: 20210413
  3. PREDNISOLONE [Concomitant]
     Active Substance: PREDNISOLONE
     Indication: Product used for unknown indication
     Dates: start: 20150410, end: 20210413
  4. ORYCTOLAGUS CUNICULUS SKIN [Concomitant]
     Active Substance: ORYCTOLAGUS CUNICULUS SKIN
     Indication: Product used for unknown indication
     Dates: start: 20150410, end: 20210413
  5. TRAMCET [Concomitant]
     Active Substance: ACETAMINOPHEN\TRAMADOL
     Indication: Product used for unknown indication
     Dates: start: 20200303
  6. METHYLCOBALAMIN [Concomitant]
     Active Substance: METHYLCOBALAMIN
     Indication: Product used for unknown indication
     Dates: start: 20150410, end: 20210413

REACTIONS (4)
  - Osteomyelitis [Unknown]
  - Osteonecrosis of jaw [Recovered/Resolved]
  - Pneumonia [Unknown]
  - Tooth extraction [Unknown]

NARRATIVE: CASE EVENT DATE: 20210401
